FAERS Safety Report 8512732-4 (Version None)
Quarter: 2012Q3

REPORT INFORMATION
  Report Type: 
  Country: None (occurrence: None)
  Receive Date: 20120716
  Receipt Date: 20120702
  Transmission Date: 20120928
  Serious: No
  Sender: FDA-Public Use
  Company Number: US-ASTRAZENECA-2012SE44900

PATIENT
  Age: 68 Year
  Sex: Female
  Weight: 38.1 kg

DRUGS (3)
  1. ENTOCORT EC [Suspect]
     Indication: COLITIS ULCERATIVE
     Route: 048
  2. APRISO [Concomitant]
  3. DEXILANT [Concomitant]

REACTIONS (4)
  - INTENTIONAL DRUG MISUSE [None]
  - WEIGHT DECREASED [None]
  - ADVERSE EVENT [None]
  - WEIGHT INCREASED [None]
